FAERS Safety Report 10419281 (Version 1)
Quarter: 2014Q2

REPORT INFORMATION
  Report Type: Report from Study
  Country: US (occurrence: None)
  Receive Date: 20140627
  Receipt Date: 20140627
  Transmission Date: 20141212
  Serious: No
  Sender: FDA-Public Use
  Company Number: CABO-14004099

PATIENT
  Age: 63 Year
  Sex: Female

DRUGS (1)
  1. COMETRIQ (CABOZANTINIB) CAPSULE [Suspect]
     Route: 048
     Dates: start: 20140222, end: 20140313

REACTIONS (24)
  - Head discomfort [None]
  - Burning sensation [None]
  - Alopecia [None]
  - Dry mouth [None]
  - Initial insomnia [None]
  - Cough [None]
  - Haemoptysis [None]
  - Abdominal pain upper [None]
  - Dysgeusia [None]
  - Pain in extremity [None]
  - Fatigue [None]
  - Tongue ulceration [None]
  - Dysphonia [None]
  - Headache [None]
  - Pain [None]
  - Oropharyngeal pain [None]
  - Musculoskeletal stiffness [None]
  - Local swelling [None]
  - Skin exfoliation [None]
  - Abdominal discomfort [None]
  - Vomiting [None]
  - Asthenia [None]
  - Hair colour changes [None]
  - Blister [None]
